FAERS Safety Report 9332693 (Version 2)
Quarter: 2013Q3

REPORT INFORMATION
  Report Type: Report from Study
  Country: US (occurrence: US)
  Receive Date: 20130606
  Receipt Date: 20130726
  Transmission Date: 20140515
  Serious: Yes (Other)
  Sender: FDA-Public Use
  Company Number: PHEH2013US011855

PATIENT
  Sex: Female
  Weight: 54.42 kg

DRUGS (7)
  1. GILENYA [Suspect]
     Indication: MULTIPLE SCLEROSIS
     Dosage: 0.5 MG, QD
     Route: 048
  2. CENTRUM [Concomitant]
  3. PROBIOTIC [Concomitant]
  4. AD-VITAMIN [Concomitant]
  5. FISH OIL [Concomitant]
  6. OMEGA 3-6-9 [Concomitant]
  7. VIT B 12 [Concomitant]

REACTIONS (4)
  - Cataract [Unknown]
  - Vision blurred [Unknown]
  - Retinal oedema [Unknown]
  - Macular degeneration [Unknown]
